FAERS Safety Report 9225172 (Version 1)
Quarter: 2013Q2

REPORT INFORMATION
  Report Type: Spontaneous
  Country: US (occurrence: None)
  Receive Date: 20130410
  Receipt Date: 20130410
  Transmission Date: 20140414
  Serious: Yes (Other)
  Sender: FDA-Public Use
  Company Number: None

PATIENT
  Age: 46 Year
  Sex: Male
  Weight: 57.15 kg

DRUGS (1)
  1. PROAIR [Suspect]
     Indication: DYSPNOEA
     Route: 055
     Dates: start: 20130324, end: 20130324

REACTIONS (4)
  - Heart rate increased [None]
  - Hyperhidrosis [None]
  - Chest pain [None]
  - Dyspnoea [None]
